FAERS Safety Report 23837308 (Version 1)
Quarter: 2024Q2

REPORT INFORMATION
  Report Type: Other
  Country: ES (occurrence: ES)
  Receive Date: 20240509
  Receipt Date: 20240509
  Transmission Date: 20240716
  Serious: Yes (Other)
  Sender: FDA-Public Use
  Company Number: ES-Bion-013016

PATIENT
  Sex: Male

DRUGS (2)
  1. DEXAMETHASONE [Suspect]
     Active Substance: DEXAMETHASONE
     Indication: Inflammatory pseudotumour
  2. PREDNISONE [Concomitant]
     Active Substance: PREDNISONE
     Indication: Inflammatory pseudotumour

REACTIONS (1)
  - Drug dependence [Unknown]
